FAERS Safety Report 11503211 (Version 2)
Quarter: 2015Q4

REPORT INFORMATION
  Report Type: Spontaneous
  Country: US (occurrence: US)
  Receive Date: 20150914
  Receipt Date: 20151105
  Transmission Date: 20160304
  Serious: Yes (Hospitalization)
  Sender: FDA-Public Use
  Company Number: US-ASTELLAS-2015US023213

PATIENT
  Age: 77 Year
  Sex: Male

DRUGS (1)
  1. XTANDI [Suspect]
     Active Substance: ENZALUTAMIDE
     Indication: PROSTATE CANCER
     Dosage: 80 MG (2 CAPSULES), ONCE DAILY
     Route: 048
     Dates: start: 20130830

REACTIONS (4)
  - Dehydration [Unknown]
  - Underdose [Unknown]
  - Bacterial infection [Unknown]
  - Abdominal infection [Unknown]

NARRATIVE: CASE EVENT DATE: 20130830
